FAERS Safety Report 10012227 (Version 2)
Quarter: 2014Q2

REPORT INFORMATION
  Report Type: Spontaneous
  Country: US (occurrence: US)
  Receive Date: 20140312
  Receipt Date: 20140430
  Transmission Date: 20141212
  Serious: Yes (Other)
  Sender: FDA-Public Use
  Company Number: US-PFIZER INC-2014068554

PATIENT
  Sex: Female

DRUGS (4)
  1. NEURONTIN [Suspect]
     Indication: PAIN IN EXTREMITY
     Dosage: 1000 MG, 1X/DAY
  2. NEURONTIN [Suspect]
     Indication: MUSCLE SPASMS
  3. GLUCOTROL XL [Concomitant]
     Dosage: 5 MG, UNK
  4. DETROL LA [Concomitant]
     Dosage: 4 MG, UNK

REACTIONS (3)
  - Lethargy [Unknown]
  - Drug ineffective [Unknown]
  - Neuralgia [Unknown]
